FAERS Safety Report 20959571 (Version 2)
Quarter: 2022Q4

REPORT INFORMATION
  Report Type: Spontaneous
  Country: DE (occurrence: DE)
  Receive Date: 20220614
  Receipt Date: 20221012
  Transmission Date: 20230113
  Serious: Yes (Death, Other)
  Sender: FDA-Public Use
  Company Number: DE-PFIZER INC-202200825936

PATIENT
  Weight: 4.7 kg

DRUGS (3)
  1. AVIBACTAM SODIUM\CEFTAZIDIME [Suspect]
     Active Substance: AVIBACTAM SODIUM\CEFTAZIDIME
     Indication: Product used for unknown indication
     Dosage: 18.75 MG/KG, Q12H
  2. FUROSEMIDE [Concomitant]
     Active Substance: FUROSEMIDE
  3. ETHACRYNIC ACID [Concomitant]
     Active Substance: ETHACRYNIC ACID

REACTIONS (2)
  - Multiple organ dysfunction syndrome [Fatal]
  - Renal failure [Fatal]

NARRATIVE: CASE EVENT DATE: 20220301
